FAERS Safety Report 6520218-1 (Version None)
Quarter: 2009Q4

REPORT INFORMATION
  Report Type: 
  Country: None (occurrence: None)
  Receive Date: 20091229
  Receipt Date: 20091221
  Transmission Date: 20100525
  Serious: Yes (Death, Other)
  Sender: FDA-Public Use
  Company Number: PHHY2009CA51192

PATIENT
  Sex: Male

DRUGS (3)
  1. SANDOSTATIN LAR [Suspect]
     Indication: NEUROENDOCRINE TUMOUR
     Dosage: 30 MG, EVERY 4 WEEKS
     Route: 030
     Dates: start: 20091113
  2. OXYCODONE HCL [Suspect]
     Indication: PAIN
     Dosage: UNK
     Dates: start: 20091113
  3. OXYCODONE HCL [Suspect]
     Dosage: UNK
     Dates: start: 20091114

REACTIONS (8)
  - CHILLS [None]
  - DEATH [None]
  - FEELING COLD [None]
  - HEADACHE [None]
  - HYPERSENSITIVITY [None]
  - NAUSEA [None]
  - PYREXIA [None]
  - VOMITING [None]
